FAERS Safety Report 15266180 (Version 1)
Quarter: 2018Q3

REPORT INFORMATION
  Report Type: Spontaneous
  Country: US (occurrence: US)
  Receive Date: 20180724
  Receipt Date: 20180724
  Transmission Date: 20181010
  Serious: Yes (Other)
  Sender: FDA-Public Use
  Company Number: None

PATIENT
  Age: 54 Year
  Sex: Female
  Weight: 89.55 kg

DRUGS (1)
  1. DULOXETINE HCL [Suspect]
     Active Substance: DULOXETINE HYDROCHLORIDE
     Indication: FIBROMYALGIA
     Dosage: ?          QUANTITY:1 CAPSULE(S);?
     Route: 048
     Dates: start: 20180719, end: 20180721

REACTIONS (7)
  - Pain [None]
  - Fatigue [None]
  - Diarrhoea [None]
  - Product quality issue [None]
  - Migraine [None]
  - Headache [None]
  - Bone pain [None]

NARRATIVE: CASE EVENT DATE: 20180723
